FAERS Safety Report 8827733 (Version 1)
Quarter: 2012Q4

REPORT INFORMATION
  Report Type: 
  Country: US (occurrence: US)
  Receive Date: 20121008
  Receipt Date: 20121008
  Transmission Date: 20130627
  Serious: No
  Sender: FDA-Public Use
  Company Number: US-PFIZER INC-2012245124

PATIENT
  Age: 73 Year
  Sex: Female
  Weight: 46.71 kg

DRUGS (3)
  1. AZITHROMYCIN [Suspect]
     Indication: LARYNGITIS
     Dosage: UNK
     Dates: start: 201001, end: 201001
  2. IBUPROFEN [Concomitant]
     Indication: BACK PAIN
     Dosage: UNK, as needed
  3. VITAMINS [Concomitant]
     Dosage: UNK

REACTIONS (2)
  - Parosmia [Not Recovered/Not Resolved]
  - Hypogeusia [Not Recovered/Not Resolved]
